FAERS Safety Report 6466097-2 (Version None)
Quarter: 2009Q4

REPORT INFORMATION
  Report Type: 
  Country: None (occurrence: None)
  Receive Date: 20091201
  Receipt Date: 20091201
  Transmission Date: 20100525
  Serious: Yes (Other)
  Sender: FDA-Public Use
  Company Number: None

PATIENT
  Age: 68 Year
  Sex: Female
  Weight: 65.7716 kg

DRUGS (1)
  1. PLAVIX [Suspect]
     Dosage: 75 MG 1 DAILY
     Dates: start: 20090217, end: 20090801

REACTIONS (17)
  - ABDOMINAL PAIN UPPER [None]
  - ARTHRALGIA [None]
  - CONFUSIONAL STATE [None]
  - DECREASED APPETITE [None]
  - DECREASED INTEREST [None]
  - DEPRESSION [None]
  - DISORIENTATION [None]
  - DIZZINESS [None]
  - EMOTIONAL DISORDER [None]
  - HEADACHE [None]
  - LETHARGY [None]
  - MEMORY IMPAIRMENT [None]
  - NIGHTMARE [None]
  - PRURITUS [None]
  - RASH [None]
  - SOMNOLENCE [None]
  - SWELLING [None]
